FAERS Safety Report 18360399 (Version 1)
Quarter: 2020Q4

REPORT INFORMATION
  Report Type: Spontaneous
  Country: GB (occurrence: GB)
  Receive Date: 20201008
  Receipt Date: 20201008
  Transmission Date: 20210114
  Serious: Yes (Other)
  Sender: FDA-Public Use
  Company Number: GB-ALKEM LABORATORIES LIMITED-GB-ALKEM-2020-06463

PATIENT
  Sex: Female

DRUGS (4)
  1. RISPERIDONE. [Concomitant]
     Active Substance: RISPERIDONE
     Indication: PSYCHOTIC DISORDER
     Dosage: 2 MILLIGRAM, QD
     Route: 048
  2. QUETIAPINE FUMARATE. [Suspect]
     Active Substance: QUETIAPINE FUMARATE
     Indication: PSYCHOTIC DISORDER
     Dosage: 300 MILLIGRAM, BID
     Route: 065
  3. QUETIAPINE FUMARATE. [Suspect]
     Active Substance: QUETIAPINE FUMARATE
     Dosage: 300 MILLIGRAM, QD
     Route: 065
  4. ARIPIPRAZOLE. [Suspect]
     Active Substance: ARIPIPRAZOLE
     Indication: PSYCHOTIC DISORDER
     Dosage: 30 MILLIGRAM, QD
     Route: 065

REACTIONS (7)
  - Drug ineffective [Unknown]
  - Extrapyramidal disorder [Recovering/Resolving]
  - Treatment noncompliance [Unknown]
  - Cogwheel rigidity [Recovering/Resolving]
  - Tremor [Recovering/Resolving]
  - Sedation [Unknown]
  - Hallucinations, mixed [Unknown]
